FAERS Safety Report 9485399 (Version 2)
Quarter: 2014Q1

REPORT INFORMATION
  Report Type: Report from Study
  Country: DE (occurrence: DE)
  Receive Date: 20130829
  Receipt Date: 20140224
  Transmission Date: 20141002
  Serious: Yes (Hospitalization)
  Sender: FDA-Public Use
  Company Number: DE-ROCHE-1264396

PATIENT
  Age: 72 Year
  Sex: Female
  Weight: 93 kg

DRUGS (16)
  1. PERTUZUMAB [Suspect]
     Indication: BREAST CANCER
     Dosage: LOADING DOSE.?DAY 1 OF CYCLE 1 AS PER PROTOCOL
     Route: 042
     Dates: start: 20130701
  2. PERTUZUMAB [Suspect]
     Dosage: MAINTENANCE DOSE.?LAST DOSE PRIOR TO EVENT: 13/AUG/2013
     Route: 042
  3. TRASTUZUMAB [Suspect]
     Indication: BREAST CANCER
     Dosage: LOADING DOSE?DAY 2 OF CYCLE 1 AS PER PROTOCOL
     Route: 042
     Dates: start: 20130702
  4. TRASTUZUMAB [Suspect]
     Dosage: MAINTENANCE DOSE (6MG/KG, AS PER PROTOCOL).?LAST DOSE PRIOR TO EVENT: 13/AUG/2013
     Route: 042
  5. VINORELBINE [Suspect]
     Indication: BREAST CANCER
     Dosage: DAY 2 AND DAY 9 OF FIRST CYCLE, AS PER PROTOCOL.
     Route: 042
     Dates: start: 20130702
  6. VINORELBINE [Suspect]
     Dosage: LAST DOSE PRIOR TO EVENT: 13/AUG/2013. ?DAY 1 AND 8 (OR DAYS 2 AND 9) OF SUBSEQUENT CYCLES: 30-35MG/
     Route: 042
     Dates: start: 20130723
  7. OLMETEC [Concomitant]
     Route: 065
     Dates: start: 200401
  8. BISOPROLOL [Concomitant]
     Route: 065
     Dates: start: 200401
  9. PANTOZOL (GERMANY) [Concomitant]
     Route: 065
     Dates: start: 20130717
  10. ONDANSETRON [Concomitant]
     Route: 065
     Dates: start: 20130702
  11. TORASEMIDE [Concomitant]
     Route: 065
     Dates: start: 200401
  12. PROTAPHANE [Concomitant]
     Dosage: 12 I.E
     Route: 058
     Dates: start: 200401
  13. TAVOR (GERMANY) [Concomitant]
     Route: 065
     Dates: start: 20130702
  14. SIMVASTATIN [Concomitant]
     Route: 065
     Dates: start: 200401
  15. BLOPRESS [Concomitant]
     Route: 065
     Dates: start: 200401
  16. MONO-EMBOLEX [Concomitant]
     Dosage: 8,000 IE
     Route: 058
     Dates: start: 20130627

REACTIONS (1)
  - Malaise [Recovered/Resolved]
